FAERS Safety Report 7314554-9 (Version None)
Quarter: 2011Q1

REPORT INFORMATION
  Report Type: 
  Country: None (occurrence: None)
  Receive Date: 20110225
  Receipt Date: 20101018
  Transmission Date: 20110831
  Serious: No
  Sender: FDA-Public Use
  Company Number: US-MYLANLABS-2010S1018003

PATIENT
  Age: 25 Year
  Sex: Male
  Weight: 81.65 kg

DRUGS (3)
  1. AMNESTEEM [Suspect]
     Indication: ACNE CYSTIC
     Route: 048
     Dates: end: 20100927
  2. CLARAVIS [Suspect]
     Indication: ACNE
     Route: 048
     Dates: start: 20100402
  3. AMNESTEEM [Suspect]
     Route: 048
     Dates: end: 20100917

REACTIONS (1)
  - FATIGUE [None]
